FAERS Safety Report 17551384 (Version 2)
Quarter: 2021Q4

REPORT INFORMATION
  Report Type: Spontaneous
  Country: AE (occurrence: AE)
  Receive Date: 20200317
  Receipt Date: 20211201
  Transmission Date: 20220304
  Serious: Yes (Death, Other)
  Sender: FDA-Public Use
  Company Number: AE-PFIZER INC-2020113814

PATIENT
  Age: 19 Year
  Sex: Female

DRUGS (1)
  1. BESPONSA [Suspect]
     Active Substance: INOTUZUMAB OZOGAMICIN
     Dosage: 0.9 MG, UNK
     Route: 042
     Dates: start: 20190905, end: 201912

REACTIONS (1)
  - Death [Fatal]
